FAERS Safety Report 8054994-6 (Version None)
Quarter: 2012Q1

REPORT INFORMATION
  Report Type: 
  Country: None (occurrence: None)
  Receive Date: 20120119
  Receipt Date: 20120112
  Transmission Date: 20120608
  Serious: Yes (Hospitalization, Congenital Anomaly, Other)
  Sender: FDA-Public Use
  Company Number: US-PFIZER INC-2011151237

PATIENT
  Sex: Female
  Weight: 3 kg

DRUGS (11)
  1. ZOLOFT [Suspect]
     Dosage: 50 MG, UNK
     Route: 064
     Dates: end: 20060216
  2. PREDNISONE [Concomitant]
     Indication: ERYTHEMA NODOSUM
     Dosage: 10 MG, FOUR TIMES WEEKLY
     Route: 064
     Dates: start: 20050802
  3. ACETAMINOPHEN [Concomitant]
     Indication: STAPHYLOCOCCAL INFECTION
     Dosage: UNK
     Route: 064
     Dates: start: 20050727
  4. LORTAB [Concomitant]
     Indication: STAPHYLOCOCCAL INFECTION
     Dosage: UNK
     Route: 064
     Dates: start: 20050727
  5. LORTAB [Concomitant]
     Indication: ERYTHEMA NODOSUM
  6. LEVAQUIN [Concomitant]
     Indication: ERYTHEMA NODOSUM
  7. ZOLOFT [Suspect]
     Dosage: 100 MG DAILY
     Route: 064
     Dates: start: 20000602
  8. ACETAMINOPHEN [Concomitant]
     Indication: ERYTHEMA NODOSUM
  9. ZOLOFT [Suspect]
     Dosage: 100 MG, UNK
     Route: 064
     Dates: start: 20000401
  10. PREDNISONE [Concomitant]
     Indication: STAPHYLOCOCCAL INFECTION
     Dosage: TAPERING DOSE
     Route: 064
     Dates: start: 20050727
  11. LEVAQUIN [Concomitant]
     Indication: STAPHYLOCOCCAL INFECTION
     Dosage: 500 MG, DAILY
     Route: 064
     Dates: start: 20050727

REACTIONS (8)
  - CRANIOSYNOSTOSIS [None]
  - CEPHALHAEMATOMA [None]
  - URINARY TRACT INFECTION [None]
  - FOETAL EXPOSURE DURING PREGNANCY [None]
  - OTITIS MEDIA [None]
  - PLAGIOCEPHALY [None]
  - SUBGALEAL HAEMATOMA [None]
  - CONJUNCTIVITIS [None]
